FAERS Safety Report 5334125-3 (Version None)
Quarter: 2007Q2

REPORT INFORMATION
  Report Type: 
  Country: None (occurrence: None)
  Receive Date: 20070308
  Receipt Date: 20061214
  Transmission Date: 20071010
  Serious: No
  Sender: FDA-Public Use
  Company Number: 2005-BP-21378BP

PATIENT
  Sex: Female

DRUGS (2)
  1. SPIRIVA [Suspect]
     Indication: PULMONARY FIBROSIS
     Dosage: 18 MCG (18 MCG, 1 QD), IH
     Route: 055
     Dates: start: 20051115, end: 20051212
  2. SPIRIVA [Suspect]

REACTIONS (1)
  - DYSGEUSIA [None]
